FAERS Safety Report 24065040 (Version 1)
Quarter: 2024Q3

REPORT INFORMATION
  Report Type: Spontaneous
  Country: US (occurrence: None)
  Receive Date: 20240708
  Receipt Date: 20240708
  Transmission Date: 20241017
  Serious: Yes (Life-Threatening, Hospitalization, Other)
  Sender: Public
  Company Number: None

PATIENT
  Age: 52 Year
  Sex: Female
  Weight: 76.2 kg

DRUGS (1)
  1. VIBERZI [Suspect]
     Active Substance: ELUXADOLINE
     Dosage: FREQUENCY : TWICE A DAY;?
     Route: 048

REACTIONS (7)
  - Septic shock [None]
  - Faecaloma [None]
  - Intestinal mass [None]
  - Intestinal perforation [None]
  - Rectal ulcer [None]
  - Acute kidney injury [None]
  - Liver function test increased [None]

NARRATIVE: CASE EVENT DATE: 20240626
